FAERS Safety Report 15148229 (Version 7)
Quarter: 2020Q3

REPORT INFORMATION
  Report Type: Report from Study
  Country: US (occurrence: US)
  Receive Date: 20180716
  Receipt Date: 20190313
  Transmission Date: 20201105
  Serious: Yes (Hospitalization)
  Sender: FDA-Public Use
  Company Number: US-ROCHE-2152105

PATIENT
  Age: 80 Year
  Sex: Female
  Weight: 54.9 kg

DRUGS (33)
  1. DIFLUCAN [Concomitant]
     Active Substance: FLUCONAZOLE
     Route: 048
     Dates: start: 20180627, end: 20180704
  2. CINVANTI [Concomitant]
     Active Substance: APREPITANT
     Route: 042
     Dates: start: 20180705, end: 20180705
  3. MD ANDERSON MOUTHWASH (BENADRYL/HYDROCORTISONE/NYSTATIN) [Concomitant]
     Indication: CANDIDA INFECTION
     Route: 060
     Dates: start: 20180626, end: 20180705
  4. LEVAQUIN [Concomitant]
     Active Substance: LEVOFLOXACIN
     Indication: INFECTION PROPHYLAXIS
  5. CINVANTI [Concomitant]
     Active Substance: APREPITANT
     Indication: PROPHYLAXIS
     Route: 042
     Dates: start: 20180613, end: 20180613
  6. MAGIC MOUTH WASH (MAALOX, BENADRYL, NYSTATIN, LIDOCAINE VISCOUS) [Concomitant]
     Indication: CANDIDA INFECTION
     Route: 058
     Dates: start: 20180705
  7. DIFLUCAN [Concomitant]
     Active Substance: FLUCONAZOLE
     Indication: CANDIDA INFECTION
     Dosage: BY MOUTH
     Route: 048
     Dates: start: 20180523, end: 20180606
  8. NEULASTA [Concomitant]
     Active Substance: PEGFILGRASTIM
     Indication: PROPHYLAXIS
     Route: 058
     Dates: start: 20180613, end: 20180613
  9. SUSTOL [Concomitant]
     Active Substance: GRANISETRON
     Route: 058
     Dates: start: 20180705, end: 20180705
  10. PREDNISONE. [Suspect]
     Active Substance: PREDNISONE
     Dosage: DOSE OF LAST PREDNISONE/PREDNISOLONE/ METHYLPREDNISOLONE ADMINISTERED 20 MG ON 02/JUL/2018
     Route: 048
     Dates: start: 20180702
  11. ENTECAVIR. [Concomitant]
     Active Substance: ENTECAVIR
     Indication: HEPATITIS B
     Dosage: BY MOUTH
     Route: 048
     Dates: start: 20180523
  12. PLACEBO [Suspect]
     Active Substance: UNSPECIFIED INGREDIENT
     Indication: DIFFUSE LARGE B-CELL LYMPHOMA
     Dosage: MOST RECENT DOSE PRIOR TO SAE: 05/JUL/2018
     Route: 042
     Dates: start: 20180524
  13. BENADRYL [Concomitant]
     Active Substance: DIPHENHYDRAMINE HYDROCHLORIDE
     Indication: PROPHYLAXIS
     Route: 042
     Dates: start: 20180613, end: 20180613
  14. SUSTOL [Concomitant]
     Active Substance: GRANISETRON
     Indication: PROPHYLAXIS
     Route: 058
     Dates: start: 20180613, end: 20180613
  15. TRAMADOL. [Concomitant]
     Active Substance: TRAMADOL
     Indication: PAIN
     Route: 048
     Dates: start: 20180316
  16. PROMETHAZINE [Concomitant]
     Active Substance: PROMETHAZINE HYDROCHLORIDE
     Indication: NAUSEA
     Route: 048
     Dates: start: 20180523, end: 20180614
  17. CIPRO [Concomitant]
     Active Substance: CIPROFLOXACIN HYDROCHLORIDE
     Indication: PROPHYLAXIS
     Route: 048
     Dates: start: 20180605, end: 20180607
  18. POLATUZUMAB VEDOTIN. [Suspect]
     Active Substance: POLATUZUMAB VEDOTIN
     Indication: DIFFUSE LARGE B-CELL LYMPHOMA
     Dosage: DATE OF MOST RECENT DOSE OF POLATUZUMAB VEDOTIN PRIOR TO SAE ONSET ON 05/JUL2018 WAS 103.7 MG
     Route: 042
     Dates: start: 20180524
  19. RITUXIMAB. [Suspect]
     Active Substance: RITUXIMAB
     Indication: DIFFUSE LARGE B-CELL LYMPHOMA
     Dosage: DATE OF MOST RECENT DOSE OF RITUXIMAB PRIOR TO SAE ONSET 05/ JUL/2018 WAS 577.5 MG/250 CC NS
     Route: 042
     Dates: start: 20180523
  20. CHLORPROMAZINE. [Concomitant]
     Active Substance: CHLORPROMAZINE
     Indication: NAUSEA
     Dosage: BY MOUTH
     Route: 065
     Dates: start: 20180518
  21. ACTIVASE [Concomitant]
     Active Substance: ALTEPLASE
     Indication: PROPHYLAXIS
     Route: 042
     Dates: start: 20180613, end: 20180613
  22. LEVAQUIN [Concomitant]
     Active Substance: LEVOFLOXACIN
     Indication: NEUTROPENIA
     Route: 048
     Dates: start: 20180617, end: 20180624
  23. DOXORUBICIN [Suspect]
     Active Substance: DOXORUBICIN
     Indication: DIFFUSE LARGE B-CELL LYMPHOMA
     Dosage: DATE OF MOST RECENT DOSE OF DOXORUBICIN PRIOR TO SAE ONSET 05 JUL 2018 WAS 77 MG
     Route: 042
     Dates: start: 20180524
  24. PREDNISONE. [Suspect]
     Active Substance: PREDNISONE
     Indication: DIFFUSE LARGE B-CELL LYMPHOMA
     Dosage: ON DAYS 1?5 OF EVERY 21?DAY CYCLE FOR 6 CYCLES
     Route: 048
     Dates: start: 20180523
  25. TYLENOL [Concomitant]
     Active Substance: ACETAMINOPHEN
     Route: 048
     Dates: start: 20180705, end: 20180705
  26. BENADRYL [Concomitant]
     Active Substance: DIPHENHYDRAMINE HYDROCHLORIDE
     Route: 042
     Dates: start: 20180705, end: 20180705
  27. CYCLOPHOSPHAMIDE. [Suspect]
     Active Substance: CYCLOPHOSPHAMIDE
     Indication: DIFFUSE LARGE B-CELL LYMPHOMA
     Dosage: DATE OF MOST RECENT DOSE OF CYCLOPHOSPHAMIDE PRIOR TO SAE ONSET 05/JUL/2018 WAS 1155 MG/250 CC NS
     Route: 042
     Dates: start: 20180524
  28. TYLENOL [Concomitant]
     Active Substance: ACETAMINOPHEN
     Indication: PAIN
     Dosage: BY MOUTH
     Route: 065
     Dates: start: 20180511
  29. TYLENOL [Concomitant]
     Active Substance: ACETAMINOPHEN
     Indication: PROPHYLAXIS
     Route: 048
     Dates: start: 20180613, end: 20180613
  30. ZOFRAN [Concomitant]
     Active Substance: ONDANSETRON HYDROCHLORIDE
     Indication: NAUSEA
     Dosage: BY MOUTH
     Route: 065
     Dates: start: 20180518
  31. HEPARIN (PORCINE) [Concomitant]
     Route: 042
     Dates: start: 20180523, end: 20180612
  32. MILK OF MAGNESIA [Concomitant]
     Active Substance: MAGNESIUM HYDROXIDE
     Indication: CONSTIPATION
     Dosage: BY MOUTH
     Route: 048
     Dates: start: 20180511
  33. NEULASTA [Concomitant]
     Active Substance: PEGFILGRASTIM
     Route: 058
     Dates: start: 20180705, end: 20180705

REACTIONS (1)
  - Chills [Recovered/Resolved]

NARRATIVE: CASE EVENT DATE: 20180705
